FAERS Safety Report 5644550-9 (Version None)
Quarter: 2008Q1

REPORT INFORMATION
  Report Type: 
  Country: None (occurrence: None)
  Receive Date: 20080229
  Receipt Date: 20070228
  Transmission Date: 20080703
  Serious: No
  Sender: FDA-Public Use
  Company Number: A0641347A

PATIENT
  Age: 47 Year
  Sex: Female

DRUGS (3)
  1. VALTREX [Suspect]
     Dosage: 1G VARIABLE DOSE
     Route: 048
  2. CLARITIN-D [Concomitant]
  3. PRILOSEC [Concomitant]

REACTIONS (1)
  - DRUG INEFFECTIVE [None]
